FAERS Safety Report 21187371 (Version 4)
Quarter: 2025Q1

REPORT INFORMATION
  Report Type: Report from Study
  Country: US (occurrence: US)
  Receive Date: 20220808
  Receipt Date: 20250312
  Transmission Date: 20250408
  Serious: Yes (Hospitalization, Other)
  Sender: TAKEDA
  Company Number: US-TAKEDA-2022TUS052659

PATIENT
  Sex: Female

DRUGS (5)
  1. TEDUGLUTIDE [Suspect]
     Active Substance: TEDUGLUTIDE
     Indication: Short-bowel syndrome
     Dosage: 3.5 MILLIGRAM, QD
     Dates: start: 20190808
  2. TEDUGLUTIDE [Suspect]
     Active Substance: TEDUGLUTIDE
     Dosage: 3.6 MILLIGRAM, QD
     Dates: start: 20190809
  3. TEDUGLUTIDE [Suspect]
     Active Substance: TEDUGLUTIDE
     Dosage: 3.5 MILLIGRAM, QD
     Dates: start: 201908
  4. TEDUGLUTIDE [Suspect]
     Active Substance: TEDUGLUTIDE
     Dosage: 3.5 MILLIGRAM, QD
  5. TEDUGLUTIDE [Suspect]
     Active Substance: TEDUGLUTIDE
     Dosage: 0.27 MILLILITER, QD

REACTIONS (22)
  - Weight decreased [Recovering/Resolving]
  - Swelling [Recovering/Resolving]
  - Bone marrow disorder [Unknown]
  - Gastrointestinal neoplasm [Unknown]
  - Rheumatoid arthritis [Unknown]
  - Myocardial infarction [Unknown]
  - Polyarthritis [Unknown]
  - Loss of consciousness [Unknown]
  - Alopecia [Unknown]
  - Muscle atrophy [Not Recovered/Not Resolved]
  - Infusion site pain [Not Recovered/Not Resolved]
  - Heart rate abnormal [Not Recovered/Not Resolved]
  - Blood pressure decreased [Not Recovered/Not Resolved]
  - Diarrhoea [Recovering/Resolving]
  - Pancreatic enlargement [Recovering/Resolving]
  - Product quality issue [Unknown]
  - Bone swelling [Unknown]
  - Product prescribing issue [Unknown]
  - Product storage error [Unknown]
  - Abdominal symptom [Unknown]
  - Abdominal discomfort [Unknown]
  - Blood pressure decreased [Unknown]
